FAERS Safety Report 5053734-2 (Version None)
Quarter: 2006Q3

REPORT INFORMATION
  Report Type: 
  Country: None (occurrence: None)
  Receive Date: 20060712
  Receipt Date: 20060629
  Transmission Date: 20061208
  Serious: Yes (Death, Other)
  Sender: FDA-Public Use
  Company Number: 2006081170

PATIENT
  Age: 69 Year
  Sex: Male

DRUGS (10)
  1. LIPITOR [Suspect]
     Indication: BLOOD CHOLESTEROL INCREASED
     Dosage: 40 MG (40 MG, 1 IN 1 D), ORAL
     Route: 048
     Dates: start: 20060221
  2. VASOTEC [Concomitant]
  3. METHOTREXATE [Concomitant]
  4. CARVEDILOL [Concomitant]
  5. ALLOPURINOL [Concomitant]
  6. INDOMETHACIN [Concomitant]
  7. NITRO-SPRAY (ISOSORBIDE DINITRATE) [Concomitant]
  8. WARFARIN SODIUM [Concomitant]
  9. APO-FUROSEMIDE (FUROSEMIDE) [Concomitant]
  10. LEVOTHYROXINE SODIUM [Concomitant]

REACTIONS (2)
  - MYALGIA [None]
  - RHEUMATOID ARTHRITIS [None]
